FAERS Safety Report 11139562 (Version 1)
Quarter: 2015Q2

REPORT INFORMATION
  Report Type: Spontaneous
  Country: US (occurrence: None)
  Receive Date: 20150522
  Receipt Date: 20150522
  Transmission Date: 20150821
  Serious: Yes (Other)
  Sender: FDA-Public Use
  Company Number: DEP_02882_2015

PATIENT
  Sex: Female
  Weight: 68.95 kg

DRUGS (7)
  1. NUCYNTA [Suspect]
     Active Substance: TAPENTADOL HYDROCHLORIDE
     Indication: FIBROMYALGIA
     Route: 048
     Dates: start: 201502
  2. OMEPRAZOLE. [Concomitant]
     Active Substance: OMEPRAZOLE
  3. FLUOXETINE [Concomitant]
     Active Substance: FLUOXETINE\FLUOXETINE HYDROCHLORIDE
  4. NUCYNTA ER [Concomitant]
     Active Substance: TAPENTADOL HYDROCHLORIDE
     Indication: PAIN
     Dosage: 1 DF BID, DF ORAL
     Route: 048
     Dates: start: 2014, end: 201502
  5. IMITREX [Concomitant]
     Active Substance: SUMATRIPTAN\SUMATRIPTAN SUCCINATE
  6. MELOXICAM. [Concomitant]
     Active Substance: MELOXICAM
  7. TIZANIDINE (TIZANIDINE) [Concomitant]
     Active Substance: TIZANIDINE

REACTIONS (8)
  - Pruritus generalised [None]
  - Contusion [None]
  - Muscle spasms [None]
  - Seizure [None]
  - Gastrooesophageal reflux disease [None]
  - Depression [None]
  - Migraine [None]
  - Rash [None]
